FAERS Safety Report 10899693 (Version 1)
Quarter: 2015Q1

REPORT INFORMATION
  Report Type: Spontaneous
  Country: US (occurrence: US)
  Receive Date: 20150309
  Receipt Date: 20150309
  Transmission Date: 20150721
  Serious: No
  Sender: FDA-Public Use
  Company Number: US-009507513-1503USA002082

PATIENT
  Sex: Male

DRUGS (1)
  1. ANEFRIN NASAL EXTRA MOISTURIZING [Suspect]
     Active Substance: OXYMETAZOLINE HYDROCHLORIDE
     Indication: EPISTAXIS
     Dosage: UNK, UNKNOWN
     Route: 045

REACTIONS (3)
  - Off label use [Unknown]
  - Product quality issue [Unknown]
  - Drug prescribing error [Unknown]
